FAERS Safety Report 18367309 (Version 3)
Quarter: 2022Q3

REPORT INFORMATION
  Report Type: Spontaneous
  Country: US (occurrence: None)
  Receive Date: 20201009
  Receipt Date: 20220805
  Transmission Date: 20221027
  Serious: Yes (Hospitalization, Other)
  Sender: FDA-Public Use
  Company Number: 2020SF27691

PATIENT
  Age: 20225 Day
  Sex: Male
  Weight: 89.4 kg

DRUGS (45)
  1. FARXIGA [Suspect]
     Active Substance: DAPAGLIFLOZIN PROPANEDIOL
     Indication: Type 2 diabetes mellitus
     Route: 048
     Dates: start: 20150521, end: 201601
  2. FARXIGA [Suspect]
     Active Substance: DAPAGLIFLOZIN PROPANEDIOL
     Indication: Weight decreased
     Route: 048
     Dates: start: 20150521, end: 201601
  3. FARXIGA [Suspect]
     Active Substance: DAPAGLIFLOZIN PROPANEDIOL
     Indication: Blood pressure abnormal
     Route: 048
     Dates: start: 20150521, end: 201601
  4. FARXIGA [Suspect]
     Active Substance: DAPAGLIFLOZIN PROPANEDIOL
     Indication: Type 2 diabetes mellitus
     Dosage: 20.0MG UNKNOWN
     Route: 048
     Dates: start: 20150214
  5. FARXIGA [Suspect]
     Active Substance: DAPAGLIFLOZIN PROPANEDIOL
     Indication: Weight decreased
     Dosage: 20.0MG UNKNOWN
     Route: 048
     Dates: start: 20150214
  6. FARXIGA [Suspect]
     Active Substance: DAPAGLIFLOZIN PROPANEDIOL
     Indication: Blood pressure abnormal
     Dosage: 20.0MG UNKNOWN
     Route: 048
     Dates: start: 20150214
  7. FARXIGA [Suspect]
     Active Substance: DAPAGLIFLOZIN PROPANEDIOL
     Indication: Type 2 diabetes mellitus
     Dosage: UNKNOWN
     Route: 048
     Dates: start: 2015, end: 2016
  8. FARXIGA [Suspect]
     Active Substance: DAPAGLIFLOZIN PROPANEDIOL
     Indication: Weight decreased
     Dosage: UNKNOWN
     Route: 048
     Dates: start: 2015, end: 2016
  9. FARXIGA [Suspect]
     Active Substance: DAPAGLIFLOZIN PROPANEDIOL
     Indication: Blood pressure abnormal
     Dosage: UNKNOWN
     Route: 048
     Dates: start: 2015, end: 2016
  10. BYETTA [Concomitant]
     Active Substance: EXENATIDE
  11. ACETAMINOPHEN\HYDROCODONE BITARTRATE [Concomitant]
     Active Substance: ACETAMINOPHEN\HYDROCODONE BITARTRATE
     Indication: Pain
  12. AMLODIPINE [Concomitant]
     Active Substance: AMLODIPINE BESYLATE
     Indication: Blood pressure abnormal
  13. METFORMIN [Concomitant]
     Active Substance: METFORMIN HYDROCHLORIDE
     Indication: Diabetes mellitus
  14. ASPIRIN [Concomitant]
     Active Substance: ASPIRIN
     Indication: Anticoagulant therapy
  15. CELEBREX [Concomitant]
     Active Substance: CELECOXIB
  16. CLOPIDOGREL BISULFATE [Concomitant]
     Active Substance: CLOPIDOGREL BISULFATE
  17. CYCLOBENZAPRINE HYDROCHLORIDE [Concomitant]
     Active Substance: CYCLOBENZAPRINE HYDROCHLORIDE
     Indication: Muscle relaxant therapy
  18. DIOVAN [Concomitant]
     Active Substance: VALSARTAN
  19. METOPROLOL TARTRATE [Concomitant]
     Active Substance: METOPROLOL TARTRATE
  20. AZITHROMYCIN [Concomitant]
     Active Substance: AZITHROMYCIN
  21. SODIUM CHLORIDE [Concomitant]
     Active Substance: SODIUM CHLORIDE
  22. ENOXAPARIN [Concomitant]
     Active Substance: ENOXAPARIN
  23. POTASSIUM CHLORIDE [Concomitant]
     Active Substance: POTASSIUM CHLORIDE
  24. FAMOTIDINE [Concomitant]
     Active Substance: FAMOTIDINE
  25. DEXTROSE [Concomitant]
     Active Substance: DEXTROSE
  26. ACETAMINOPHEN [Concomitant]
     Active Substance: ACETAMINOPHEN
  27. GLUCAGON [Concomitant]
     Active Substance: GLUCAGON
  28. NALOXONE [Concomitant]
     Active Substance: NALOXONE
  29. LORAZEPAM [Concomitant]
     Active Substance: LORAZEPAM
  30. PROMETHAZINE [Concomitant]
     Active Substance: PROMETHAZINE HYDROCHLORIDE
  31. GABAPENTIN [Concomitant]
     Active Substance: GABAPENTIN
     Indication: Neuralgia
     Route: 065
     Dates: start: 20200423
  32. GLYBURIDE [Concomitant]
     Active Substance: GLYBURIDE
     Indication: Diabetes mellitus
     Route: 065
     Dates: start: 20200423
  33. LIDOCAINE [Concomitant]
     Active Substance: LIDOCAINE
     Route: 065
     Dates: start: 20200423
  34. ETODOLAC [Concomitant]
     Active Substance: ETODOLAC
     Indication: Arthritis
  35. METFORMIN HYDROCHLORIDE [Concomitant]
     Active Substance: METFORMIN HYDROCHLORIDE
  36. OZEMPIC [Concomitant]
     Active Substance: SEMAGLUTIDE
  37. AMOXICILLIN\CLAVULANATE POTASSIUM [Concomitant]
     Active Substance: AMOXICILLIN\CLAVULANATE POTASSIUM
  38. PIOGLITAZONE [Concomitant]
     Active Substance: PIOGLITAZONE
     Indication: Diabetes mellitus
  39. PREDNISONE [Concomitant]
     Active Substance: PREDNISONE
  40. TRAMADOL [Concomitant]
     Active Substance: TRAMADOL
  41. VALSARTAN [Concomitant]
     Active Substance: VALSARTAN
     Indication: Myocardial infarction
     Dates: start: 2014, end: 2015
  42. NEURONTIN [Concomitant]
     Active Substance: GABAPENTIN
  43. CELECOXIB [Concomitant]
     Active Substance: CELECOXIB
     Indication: Arthritis
  44. PLAVIX [Concomitant]
     Active Substance: CLOPIDOGREL BISULFATE
     Indication: Myocardial infarction
  45. JANUVIA [Concomitant]
     Active Substance: SITAGLIPTIN PHOSPHATE
     Indication: Diabetes mellitus

REACTIONS (13)
  - Fournier^s gangrene [Unknown]
  - Sepsis [Unknown]
  - Scrotal cellulitis [Unknown]
  - Perirectal abscess [Unknown]
  - Necrotising fasciitis [Unknown]
  - Rectal abscess [Unknown]
  - Scrotal abscess [Unknown]
  - Urinary tract infection [Unknown]
  - Gangrene [Unknown]
  - Genital abscess [Unknown]
  - Anal abscess [Unknown]
  - Coma [Unknown]
  - Injury [Unknown]

NARRATIVE: CASE EVENT DATE: 20160108
